FAERS Safety Report 21981862 (Version 2)
Quarter: 2023Q2

REPORT INFORMATION
  Report Type: Report from Study
  Country: US (occurrence: US)
  Receive Date: 20230212
  Receipt Date: 20230410
  Transmission Date: 20230722
  Serious: Yes (Hospitalization, Other)
  Sender: FDA-Public Use
  Company Number: US-ABBVIE-4301103

PATIENT
  Age: 80 Year
  Sex: Male
  Weight: 74.842 kg

DRUGS (3)
  1. SKYRIZI [Suspect]
     Active Substance: RISANKIZUMAB-RZAA
     Indication: Psoriasis
     Route: 058
     Dates: end: 20220810
  2. SKYRIZI [Suspect]
     Active Substance: RISANKIZUMAB-RZAA
     Route: 058
     Dates: start: 20230217
  3. Covid-19 Vaccine [Concomitant]
     Indication: COVID-19 immunisation
     Dosage: ONE IN ONCE
     Route: 030

REACTIONS (4)
  - Lung neoplasm malignant [Recovering/Resolving]
  - Occupational exposure to radiation [Unknown]
  - Exposure to toxic agent [Unknown]
  - Occupational exposure to sunlight [Unknown]

NARRATIVE: CASE EVENT DATE: 20221019
